FAERS Safety Report 5191098-4 (Version None)
Quarter: 2006Q4

REPORT INFORMATION
  Report Type: 
  Country: None (occurrence: None)
  Receive Date: 20061226
  Receipt Date: 20061214
  Transmission Date: 20070319
  Serious: Yes (Other)
  Sender: FDA-Public Use
  Company Number: PHBS2006BE19473

PATIENT

DRUGS (2)
  1. ZOMETA [Suspect]
     Indication: MULTIPLE MYELOMA
  2. AREDIA [Suspect]
     Indication: MULTIPLE MYELOMA

REACTIONS (1)
  - OSTEONECROSIS [None]
